FAERS Safety Report 19377555 (Version 1)
Quarter: 2021Q2

REPORT INFORMATION
  Report Type: Spontaneous
  Country: US (occurrence: US)
  Receive Date: 20210604
  Receipt Date: 20210604
  Transmission Date: 20210717
  Serious: Yes (Other)
  Sender: FDA-Public Use
  Company Number: US-JNJFOC-20210557655

PATIENT
  Age: 74 Year
  Sex: Male
  Weight: 99.88 kg

DRUGS (1)
  1. SPORANOX [Suspect]
     Active Substance: ITRACONAZOLE
     Indication: BLASTOMYCOSIS
     Route: 065
     Dates: start: 202012

REACTIONS (1)
  - Bone giant cell tumour [Unknown]
